FAERS Safety Report 7504971-6 (Version None)
Quarter: 2011Q2

REPORT INFORMATION
  Report Type: 
  Country: None (occurrence: None)
  Receive Date: 20110526
  Receipt Date: 20110517
  Transmission Date: 20111010
  Serious: No
  Sender: FDA-Public Use
  Company Number: US-BIOGENIDEC-2011BI001595

PATIENT
  Sex: Female

DRUGS (1)
  1. TYSABRI [Suspect]
     Indication: MULTIPLE SCLEROSIS
     Route: 042
     Dates: start: 20091120

REACTIONS (14)
  - GAIT DISTURBANCE [None]
  - ARTHRALGIA [None]
  - ANXIETY [None]
  - MALAISE [None]
  - BLINDNESS UNILATERAL [None]
  - BACK PAIN [None]
  - FALL [None]
  - PRURITUS [None]
  - VISUAL IMPAIRMENT [None]
  - ALTERED VISUAL DEPTH PERCEPTION [None]
  - ARTHRITIS [None]
  - FATIGUE [None]
  - SENSORY DISTURBANCE [None]
  - MULTIPLE SCLEROSIS RELAPSE [None]
